FAERS Safety Report 17636267 (Version 5)
Quarter: 2020Q3

REPORT INFORMATION
  Report Type: Report from Study
  Country: JP (occurrence: JP)
  Receive Date: 20200407
  Receipt Date: 20200805
  Transmission Date: 20201102
  Serious: Yes (Hospitalization)
  Sender: FDA-Public Use
  Company Number: NVSJ2020JP003834

PATIENT
  Age: 47 Year
  Sex: Female

DRUGS (7)
  1. METHYLPREDNISOLONE SODIUM SUCCINATE. [Concomitant]
     Active Substance: METHYLPREDNISOLONE SODIUM SUCCINATE
     Dosage: 25 MG
     Route: 041
     Dates: start: 20200103, end: 20200115
  2. METHYLPREDNISOLONE SODIUM SUCCINATE. [Concomitant]
     Active Substance: METHYLPREDNISOLONE SODIUM SUCCINATE
     Indication: APLASTIC ANAEMIA
     Dosage: 100 MG
     Route: 041
     Dates: start: 20191227, end: 20191231
  3. ANTITHYMOCYTE IMMUNOGLOBULIN [Suspect]
     Active Substance: THYMOCYTE IMMUNE GLOBULIN NOS
     Indication: APLASTIC ANAEMIA
     Dosage: 125 MG
     Route: 041
     Dates: start: 20191227, end: 20191231
  4. SANDIMMUNE [Suspect]
     Active Substance: CYCLOSPORINE
     Indication: APLASTIC ANAEMIA
     Dosage: 250 MG
     Route: 048
     Dates: start: 20191227, end: 20200206
  5. REVOLADE TAB [Suspect]
     Active Substance: ELTROMBOPAG
     Indication: APLASTIC ANAEMIA
     Dosage: 75 MG
     Route: 048
     Dates: start: 20200101, end: 20200318
  6. SANDIMMUNE [Suspect]
     Active Substance: CYCLOSPORINE
     Dosage: 100 MG
     Route: 048
     Dates: start: 20200207, end: 20200319
  7. METHYLPREDNISOLONE SODIUM SUCCINATE. [Concomitant]
     Active Substance: METHYLPREDNISOLONE SODIUM SUCCINATE
     Dosage: 50 MG
     Route: 041
     Dates: start: 20200101, end: 20200102

REACTIONS (1)
  - Acute myeloid leukaemia [Not Recovered/Not Resolved]

NARRATIVE: CASE EVENT DATE: 20200319
